FAERS Safety Report 6534249-9 (Version None)
Quarter: 2010Q1

REPORT INFORMATION
  Report Type: 
  Country: None (occurrence: None)
  Receive Date: 20100112
  Receipt Date: 20100104
  Transmission Date: 20100710
  Serious: Yes (Other)
  Sender: FDA-Public Use
  Company Number: US-JNJFOC-20100101192

PATIENT
  Age: 54 Year
  Sex: Female

DRUGS (3)
  1. INFLIXIMAB [Suspect]
     Indication: RHEUMATOID ARTHRITIS
     Dosage: TREATED FOR 2 MONTHS
     Route: 042
  2. ETANERCEPT [Suspect]
     Indication: SYNOVITIS
  3. ADALIMUMAB [Suspect]
     Indication: ARTHRITIS

REACTIONS (1)
  - LUPUS-LIKE SYNDROME [None]
